FAERS Safety Report 7101486-4 (Version None)
Quarter: 2010Q4

REPORT INFORMATION
  Report Type: 
  Country: None (occurrence: None)
  Receive Date: 20101108
  Receipt Date: 20101025
  Transmission Date: 20110411
  Serious: Yes (Hospitalization, Other)
  Sender: FDA-Public Use
  Company Number: 2010-3585

PATIENT
  Age: 70 Year
  Sex: Male

DRUGS (1)
  1. APO-GO PFS (APO-GO) (APOMORPHINE HYDROCHLORIDE) (APOMORPHINE HYDROCHLO [Suspect]
     Indication: PRODUCT USED FOR UNKNOWN INDICATION
     Dosage: 16 HOURS PER DAY (16 HOURS/DAY),SUBCUTANEOUS
     Route: 058
     Dates: start: 20100825

REACTIONS (3)
  - HYPOTENSION [None]
  - LOSS OF CONSCIOUSNESS [None]
  - SYNCOPE [None]
